FAERS Safety Report 20246960 (Version 1)
Quarter: 2021Q4

REPORT INFORMATION
  Report Type: Spontaneous
  Country: MX (occurrence: None)
  Receive Date: 20211227
  Receipt Date: 20211227
  Transmission Date: 20220303
  Serious: No
  Sender: FDA-Public Use
  Company Number: None

PATIENT
  Age: 27 Year
  Sex: Female
  Weight: 57 kg

DRUGS (4)
  1. MONTELUKAST [Suspect]
     Active Substance: MONTELUKAST SODIUM
     Indication: Rhinitis allergic
     Dosage: OTHER QUANTITY : 1 TABLET(S);?FREQUENCY : DAILY;?
     Route: 048
     Dates: start: 20210612, end: 20211226
  2. MONTELUKAST [Suspect]
     Active Substance: MONTELUKAST SODIUM
     Indication: Dermatitis atopic
  3. Libertrim alfa [Concomitant]
  4. Tetralysal (limecicline) [Concomitant]

REACTIONS (10)
  - Anxiety [None]
  - Dizziness [None]
  - Vision blurred [None]
  - Tremor [None]
  - Hallucination, visual [None]
  - Nasal congestion [None]
  - Insomnia [None]
  - Near death experience [None]
  - Generalised anxiety disorder [None]
  - Quality of life decreased [None]

NARRATIVE: CASE EVENT DATE: 20211226
